FAERS Safety Report 4504294-3 (Version None)
Quarter: 2004Q4

REPORT INFORMATION
  Report Type: 
  Country: None (occurrence: None)
  Receive Date: 20041116
  Receipt Date: 20041109
  Transmission Date: 20050328
  Serious: No
  Sender: FDA-Public Use
  Company Number: TAP2004Q01420

PATIENT
  Sex: Male

DRUGS (2)
  1. PREVPAC [Suspect]
     Indication: HELICOBACTER INFECTION
     Dosage: 0.5 CARD, 2 IN 1 D, PER ORAL
     Route: 048
     Dates: start: 20030501
  2. COUMADIN [Concomitant]

REACTIONS (3)
  - DRUG INEFFECTIVE [None]
  - NECK PAIN [None]
  - SUBDURAL HAEMATOMA [None]
